FAERS Safety Report 10063298 (Version 1)
Quarter: 2014Q2

REPORT INFORMATION
  Report Type: Spontaneous
  Country: US (occurrence: US)
  Receive Date: 20140407
  Receipt Date: 20140407
  Transmission Date: 20141212
  Serious: Yes (Other)
  Sender: FDA-Public Use
  Company Number: US-FRI-1000066076

PATIENT
  Sex: Female

DRUGS (6)
  1. LINZESS [Suspect]
     Indication: IRRITABLE BOWEL SYNDROME
     Dosage: 290MCG
     Route: 048
     Dates: start: 20140227
  2. FENTANYL [Suspect]
     Indication: PAIN
     Dates: start: 20140321, end: 20140329
  3. AMLODIPINE [Concomitant]
     Indication: HYPERTENSION
     Dosage: 5MG TO 10MG AS NEEDED DEPENDING ON BLOOD PRESSURE
  4. LISINOPRIL [Concomitant]
     Indication: HYPERTENSION
     Dosage: 20MG
  5. OXYCODONE [Concomitant]
     Indication: PAIN
     Dosage: 60MG
  6. MILK OF MAGNESIA [Concomitant]
     Dosage: 3 TABLESPOONS AT NIGHT

REACTIONS (3)
  - Hypertension [Not Recovered/Not Resolved]
  - Joint swelling [Not Recovered/Not Resolved]
  - Prescribed overdose [Not Recovered/Not Resolved]
